FAERS Safety Report 11336732 (Version 1)
Quarter: 2015Q3

REPORT INFORMATION
  Report Type: Report from Study
  Country: NL (occurrence: NL)
  Receive Date: 20150804
  Receipt Date: 20150804
  Transmission Date: 20151125
  Serious: Yes (Hospitalization)
  Sender: FDA-Public Use
  Company Number: NL-ABBVIE-14P-114-1239497-00

PATIENT
  Sex: Male
  Weight: 109 kg

DRUGS (4)
  1. PANTOPRAZOLE SODIUM. [Concomitant]
     Active Substance: PANTOPRAZOLE SODIUM
     Indication: PRODUCT USED FOR UNKNOWN INDICATION
     Route: 048
  2. CARBASALATE CALCIUM [Concomitant]
     Active Substance: CARBASALATE
     Indication: PRODUCT USED FOR UNKNOWN INDICATION
     Route: 048
  3. ACETYLSALICYLIC ACID [Concomitant]
     Active Substance: ASPIRIN
     Indication: PRODUCT USED FOR UNKNOWN INDICATION
     Route: 048
  4. DUODOPA [Suspect]
     Active Substance: CARBIDOPA\LEVODOPA
     Indication: PARKINSON^S DISEASE
     Dosage: 20/5MG/ML CONTINUOUS - MD 7.5, CD 3.3  ED  1.2 ND 3.2
     Route: 050
     Dates: start: 20120412

REACTIONS (3)
  - Medication error [Recovered/Resolved]
  - Incorrect dose administered [Recovered/Resolved]
  - Stoma site inflammation [Recovering/Resolving]
